FAERS Safety Report 8536262-9 (Version None)
Quarter: 2012Q3

REPORT INFORMATION
  Report Type: 
  Country: None (occurrence: None)
  Receive Date: 20120712
  Receipt Date: 20120626
  Transmission Date: 20120928
  Serious: Yes (Hospitalization)
  Sender: FDA-Public Use
  Company Number: TR-1192965

PATIENT
  Age: 38 Year
  Sex: Female

DRUGS (1)
  1. ALCAINE [Suspect]
     Indication: EYE PAIN
     Dosage: (1 DF 1X/30 MINUTES OPHTHALMIC)
     Route: 047

REACTIONS (10)
  - CORNEAL OPACITY [None]
  - OCULAR HYPERAEMIA [None]
  - CORNEAL EPITHELIUM DEFECT [None]
  - EYE PAIN [None]
  - LACRIMATION INCREASED [None]
  - SENSATION OF FOREIGN BODY [None]
  - EYELID OEDEMA [None]
  - DRUG ABUSE [None]
  - KERATITIS [None]
  - TREATMENT NONCOMPLIANCE [None]
